FAERS Safety Report 10401659 (Version 2)
Quarter: 2014Q3

REPORT INFORMATION
  Report Type: Spontaneous
  Country: GB (occurrence: None)
  Receive Date: 20140812
  Receipt Date: 20140819
  Transmission Date: 20150326
  Serious: Yes (Other)
  Sender: FDA-Public Use
  Company Number: AUR-APL-2014-08209

PATIENT
  Age: 72 Year
  Sex: Female
  Weight: 73.2 kg

DRUGS (13)
  1. ISMO [Concomitant]
     Active Substance: ISOSORBIDE MONONITRATE
  2. LIGHT LIQUID PARAFFIN [Concomitant]
  3. LISINOPRIL (LISINOPRIL) [Concomitant]
     Active Substance: LISINOPRIL
  4. CANDESARTAN (CANDESARTAN) [Concomitant]
     Active Substance: CANDESARTAN
  5. LANSOPRAZOLE (LANSOPRAZOLE) [Concomitant]
     Active Substance: LANSOPRAZOLE
  6. RAMIPRIL. [Suspect]
     Active Substance: RAMIPRIL
     Indication: PRODUCT USED FOR UNKNOWN INDICATION
     Dates: start: 20140707
  7. FLUCLOXACILLIN (FLUCLOXACILLIN) [Concomitant]
     Active Substance: FLUCLOXACILLIN
  8. ASPIRIN (ACETYLSALICYLIC ACID) [Concomitant]
     Active Substance: ASPIRIN
  9. DIGOXIN (DIGOXIN) [Concomitant]
     Active Substance: DIGOXIN
  10. WARFARIN SODIUM. [Concomitant]
     Active Substance: WARFARIN SODIUM
  11. BISOPROLOL (BISOPROLOL) [Concomitant]
     Active Substance: BISOPROLOL
  12. SIMVASTATIN (SIMVASTATIN) [Concomitant]
     Active Substance: SIMVASTATIN
  13. ISOSORBIDE MONONITRATE (ISOSORBIDE MONONITRATE) [Concomitant]
     Active Substance: ISOSORBIDE MONONITRATE

REACTIONS (6)
  - Feeling abnormal [None]
  - Fatigue [None]
  - Headache [None]
  - Discomfort [None]
  - Tinnitus [None]
  - Abdominal pain [None]

NARRATIVE: CASE EVENT DATE: 20140721
